FAERS Safety Report 9662090 (Version 1)
Quarter: 2013Q4

REPORT INFORMATION
  Report Type: Spontaneous
  Country: US (occurrence: US)
  Receive Date: 20131031
  Receipt Date: 20131031
  Transmission Date: 20140711
  Serious: Yes (Hospitalization)
  Sender: FDA-Public Use
  Company Number: PHHY2013US119404

PATIENT
  Age: 31 Year
  Sex: Female

DRUGS (6)
  1. HALOPERIDOL [Suspect]
     Indication: AGITATION
     Dosage: 5 MG, UNK
     Route: 042
  2. HALOPERIDOL [Suspect]
     Dosage: 4 MG, PRN
     Route: 042
  3. METHADONE [Suspect]
     Indication: DRUG WITHDRAWAL SYNDROME
     Dosage: 3 DF OVER 12 HOURS
     Route: 042
  4. OLANZAPINE [Suspect]
     Route: 048
  5. ONDANSETRON [Suspect]
     Indication: NAUSEA
  6. HYDROMORPHONE [Concomitant]

REACTIONS (3)
  - Unresponsive to stimuli [Recovered/Resolved]
  - Torsade de pointes [Recovered/Resolved]
  - Agitation [Recovered/Resolved]
